FAERS Safety Report 12209525 (Version 1)
Quarter: 2016Q1

REPORT INFORMATION
  Report Type: Report from Study
  Country: US (occurrence: US)
  Receive Date: 20160324
  Receipt Date: 20160324
  Transmission Date: 20160526
  Serious: Yes (Other)
  Sender: FDA-Public Use
  Company Number: US-AMGEN-USASL2016031605

PATIENT
  Age: 65 Year
  Sex: Male
  Weight: 84.35 kg

DRUGS (1)
  1. REPATHA [Suspect]
     Active Substance: EVOLOCUMAB
     Indication: MYOCARDIAL ISCHAEMIA
     Dosage: 140 MG, Q2WK
     Route: 058
     Dates: start: 20151004

REACTIONS (5)
  - Hypersensitivity [Recovering/Resolving]
  - Flushing [Recovering/Resolving]
  - Fatigue [Unknown]
  - Eye pruritus [Unknown]
  - Back pain [Recovering/Resolving]

NARRATIVE: CASE EVENT DATE: 20160314
